FAERS Safety Report 24779155 (Version 3)
Quarter: 2024Q4

REPORT INFORMATION
  Report Type: Spontaneous
  Country: MX (occurrence: MX)
  Receive Date: 20241226
  Receipt Date: 20241231
  Transmission Date: 20250115
  Serious: Yes (Death, Life-Threatening, Hospitalization)
  Sender: PFIZER
  Company Number: MX-MLMSERVICE-20241213-PI300311-00306-6

PATIENT
  Age: 64 Year
  Sex: Male
  Weight: 50 kg

DRUGS (10)
  1. METHYLPREDNISOLONE SODIUM SUCCINATE [Suspect]
     Active Substance: METHYLPREDNISOLONE SODIUM SUCCINATE
     Indication: Immunosuppressant drug therapy
     Dosage: AMPULE: DAY 1 (500 MG/10 ML): 4 ML
     Route: 042
     Dates: start: 2018, end: 2018
  2. METHYLPREDNISOLONE SODIUM SUCCINATE [Suspect]
     Active Substance: METHYLPREDNISOLONE SODIUM SUCCINATE
     Dosage: AMPULE: DAY 2 (500 MG/10 ML): 3.2 ML
     Route: 042
     Dates: start: 2018, end: 2018
  3. METHYLPREDNISOLONE SODIUM SUCCINATE [Suspect]
     Active Substance: METHYLPREDNISOLONE SODIUM SUCCINATE
     Dosage: AMPULE: DAY 3 (500 MG/10 ML): 2.4 ML
     Route: 042
     Dates: start: 2018, end: 2018
  4. METHYLPREDNISOLONE SODIUM SUCCINATE [Suspect]
     Active Substance: METHYLPREDNISOLONE SODIUM SUCCINATE
     Dosage: AMPULE: DAY 4 (500 MG/10 ML): 1.6 ML
     Route: 042
     Dates: start: 2018, end: 2018
  5. METHYLPREDNISOLONE SODIUM SUCCINATE [Suspect]
     Active Substance: METHYLPREDNISOLONE SODIUM SUCCINATE
     Dosage: AMPULE: DAY 5 (500 MG/10 ML): 0.8 ML
     Route: 042
     Dates: start: 2018, end: 2018
  6. METHYLPREDNISOLONE SODIUM SUCCINATE [Suspect]
     Active Substance: METHYLPREDNISOLONE SODIUM SUCCINATE
     Dosage: 1 G
     Dates: start: 2018, end: 2018
  7. PREDNISONE [Suspect]
     Active Substance: PREDNISONE
     Indication: Immunosuppressant drug therapy
     Dosage: 20 MG
     Route: 048
     Dates: start: 2018, end: 2018
  8. TACROLIMUS [Suspect]
     Active Substance: TACROLIMUS
     Indication: Immunosuppressant drug therapy
     Dosage: UNK
     Dates: start: 2018, end: 2018
  9. BASILIXIMAB [Suspect]
     Active Substance: BASILIXIMAB
     Indication: Immunosuppressant drug therapy
     Dosage: 20 MG
     Route: 042
     Dates: start: 2018, end: 2018
  10. MYCOPHENOLIC ACID [Suspect]
     Active Substance: MYCOPHENOLIC ACID
     Indication: Immunosuppressant drug therapy
     Dosage: UNK
     Dates: start: 2018, end: 2018

REACTIONS (4)
  - Disseminated mucormycosis [Fatal]
  - Mucormycosis [Fatal]
  - Septic shock [Fatal]
  - Multiple organ dysfunction syndrome [Fatal]

NARRATIVE: CASE EVENT DATE: 20180101
